FAERS Safety Report 20160122 (Version 2)
Quarter: 2022Q1

REPORT INFORMATION
  Report Type: Spontaneous
  Country: IT (occurrence: IT)
  Receive Date: 20211208
  Receipt Date: 20220228
  Transmission Date: 20220423
  Serious: Yes (Death, Hospitalization, Other)
  Sender: FDA-Public Use
  Company Number: IT-Accord-246745

PATIENT
  Age: 52 Year
  Sex: Female

DRUGS (12)
  1. AZACITIDINE [Suspect]
     Active Substance: AZACITIDINE
     Indication: Acute myeloid leukaemia
     Dosage: 75 MG/SQM/DAILY FOR 7 DAYS ON A 28 DAY-CYCLE
     Dates: start: 2020
  2. FLUDARABINE PHOSPHATE [Suspect]
     Active Substance: FLUDARABINE PHOSPHATE
     Indication: Acute myeloid leukaemia
     Dates: start: 201910
  3. CYTARABINE [Suspect]
     Active Substance: CYTARABINE
     Indication: Acute myeloid leukaemia
     Dates: start: 201910
  4. IDARUBICIN [Suspect]
     Active Substance: IDARUBICIN
     Indication: Acute myeloid leukaemia
     Dates: start: 201910
  5. ENASIDENIB [Suspect]
     Active Substance: ENASIDENIB
     Indication: Acute myeloid leukaemia
     Dosage: 100 MG/DAILY
     Dates: start: 202001
  6. CEFTOLOZANE SULFATE\TAZOBACTAM SODIUM [Concomitant]
     Active Substance: CEFTOLOZANE SULFATE\TAZOBACTAM SODIUM
     Indication: Antibiotic therapy
     Dosage: 1 G/0.5 G/EVERY 8 H FOR 3 WEEKS
     Dates: start: 2020
  7. COLISTIN [Concomitant]
     Active Substance: COLISTIN
     Indication: Antibiotic therapy
     Dosage: 9 X 10(6) U/THREE TIMES A DAY FOR 2 WEEKS
     Dates: start: 2020
  8. CLINDAMYCIN [Concomitant]
     Active Substance: CLINDAMYCIN
     Indication: Antibiotic therapy
     Dosage: 300 MG EVERY 6 H FOR 4 WEEKS
     Dates: start: 2020
  9. CASPOFUNGIN [Concomitant]
     Active Substance: CASPOFUNGIN
     Indication: Antibiotic therapy
     Dates: start: 2020
  10. AVIBACTAM SODIUM\CEFTAZIDIME [Concomitant]
     Active Substance: AVIBACTAM SODIUM\CEFTAZIDIME
     Dosage: 2.5 G THREE TIMES A DAY
     Dates: start: 2020
  11. AMPHOTERICIN B [Concomitant]
     Active Substance: AMPHOTERICIN B
     Dosage: 3 MG/KG/DAILY
     Dates: start: 2020
  12. VORICONAZOLE [Concomitant]
     Active Substance: VORICONAZOLE
     Dosage: 6 MG/KG EVERY 12 H ON DAY?1, THEN 4 MG/KG TWICE A DAY
     Dates: start: 2020

REACTIONS (10)
  - Neutropenia [Unknown]
  - Thrombocytopenia [Unknown]
  - Staphylococcal infection [Unknown]
  - Septic shock [Fatal]
  - Off label use [Unknown]
  - Pseudomonas infection [Unknown]
  - Sphingomonas paucimobilis infection [Unknown]
  - Enterococcal infection [Unknown]
  - Geotrichum infection [Unknown]
  - Multiple organ dysfunction syndrome [Fatal]

NARRATIVE: CASE EVENT DATE: 20190101
